FAERS Safety Report 12534570 (Version 1)
Quarter: 2016Q3

REPORT INFORMATION
  Report Type: Spontaneous
  Country: CN (occurrence: CN)
  Receive Date: 20160706
  Receipt Date: 20160706
  Transmission Date: 20161109
  Serious: Yes (Other)
  Sender: FDA-Public Use
  Company Number: CN-GILEAD-2016-0221700

PATIENT

DRUGS (2)
  1. HEPSERA [Suspect]
     Active Substance: ADEFOVIR DIPIVOXIL
     Indication: CHRONIC HEPATITIS B
     Dosage: UNK
     Route: 065
  2. POTASSIUM PHOSPHATE                /00493501/ [Suspect]
     Active Substance: POTASSIUM PHOSPHATE, DIBASIC
     Indication: PRODUCT USED FOR UNKNOWN INDICATION
     Dosage: UNK
     Route: 065

REACTIONS (4)
  - Multiple fractures [Unknown]
  - Fanconi syndrome acquired [Unknown]
  - Osteomalacia [Unknown]
  - Hypophosphataemia [Unknown]
